FAERS Safety Report 8235076-7 (Version None)
Quarter: 2012Q1

REPORT INFORMATION
  Report Type: 
  Country: None (occurrence: None)
  Receive Date: 20120326
  Receipt Date: 20120319
  Transmission Date: 20120608
  Serious: Yes (Hospitalization)
  Sender: FDA-Public Use
  Company Number: US-ABBOTT-12P-163-0908675-00

PATIENT
  Sex: Female
  Weight: 74.002 kg

DRUGS (11)
  1. HUMIRA [Suspect]
     Route: 058
     Dates: start: 20111226
  2. XANAX [Concomitant]
     Indication: ANXIETY
  3. WELLBUTRIN [Concomitant]
     Indication: DEPRESSION
  4. MIRALAX [Concomitant]
     Indication: CONSTIPATION
  5. HUMIRA [Suspect]
     Route: 058
     Dates: start: 20111212, end: 20111212
  6. HUMIRA [Suspect]
     Indication: CROHN'S DISEASE
     Route: 058
     Dates: start: 20111128, end: 20111128
  7. IMURAN [Concomitant]
     Indication: CROHN'S DISEASE
     Dates: start: 20120313
  8. LORTAB [Concomitant]
     Indication: PAIN
  9. CALCIUM +D [Concomitant]
     Indication: MINERAL SUPPLEMENTATION
  10. ALLEGRA [Concomitant]
     Indication: HYPERSENSITIVITY
  11. PRILOSEC [Concomitant]
     Indication: CROHN'S DISEASE

REACTIONS (7)
  - COLITIS [None]
  - DEHYDRATION [None]
  - CROHN'S DISEASE [None]
  - HAEMATOCHEZIA [None]
  - MUSCLE SPASMS [None]
  - ABDOMINAL PAIN [None]
  - DIARRHOEA [None]
